FAERS Safety Report 8154135-0 (Version None)
Quarter: 2012Q1

REPORT INFORMATION
  Report Type: 
  Country: None (occurrence: None)
  Receive Date: 20120221
  Receipt Date: 20120214
  Transmission Date: 20120608
  Serious: Yes (Hospitalization)
  Sender: FDA-Public Use
  Company Number: DE-B.I. PHARMACEUTICALS,INC./RIDGEFIELD-2011-DE-06374DE

PATIENT
  Sex: Male
  Weight: 96 kg

DRUGS (6)
  1. PANTOPRAZOLE [Concomitant]
  2. ATORVASTATIN CALCIUM [Concomitant]
  3. BELOC ZOK 190MG [Concomitant]
  4. RAMILICH 2,5 [Concomitant]
  5. PRADAXA [Suspect]
     Dates: start: 20110928, end: 20111023
  6. TORSEMIDE [Concomitant]

REACTIONS (1)
  - CEREBROVASCULAR ACCIDENT [None]
